FAERS Safety Report 16080177 (Version 2)
Quarter: 2019Q2

REPORT INFORMATION
  Report Type: Report from Study
  Country: IE (occurrence: IE)
  Receive Date: 20190315
  Receipt Date: 20190508
  Transmission Date: 20190711
  Serious: Yes (Other)
  Sender: FDA-Public Use
  Company Number: PHHY2018IE109405

PATIENT
  Age: 64 Year
  Sex: Female

DRUGS (1)
  1. AFINITOR [Suspect]
     Active Substance: EVEROLIMUS
     Indication: CARCINOID TUMOUR PULMONARY
     Dosage: 10 MG, UNK
     Route: 065
     Dates: start: 20170117

REACTIONS (10)
  - Nerve injury [Unknown]
  - Oral pain [Unknown]
  - Hypoaesthesia oral [Unknown]
  - Sensory loss [Unknown]
  - Carcinoid tumour pulmonary [Unknown]
  - Malignant neoplasm progression [Unknown]
  - Neoplasm [Unknown]
  - Second primary malignancy [Unknown]
  - Pain [Not Recovered/Not Resolved]
  - Fatigue [Not Recovered/Not Resolved]

NARRATIVE: CASE EVENT DATE: 20190306
